FAERS Safety Report 17159081 (Version 1)
Quarter: 2019Q4

REPORT INFORMATION
  Report Type: Spontaneous
  Country: US (occurrence: US)
  Receive Date: 20191214
  Receipt Date: 20191214
  Transmission Date: 20200122
  Serious: Yes (Disabling)
  Sender: FDA-Public Use
  Company Number: None

PATIENT
  Age: 49 Year
  Sex: Female

DRUGS (3)
  1. PROPANOLOL [Concomitant]
     Active Substance: PROPRANOLOL HYDROCHLORIDE
  2. LEVAQUIN GENERIC LEVOFLOXACIN 750 MG TABLETS JOHNSON+JOHNSON [Suspect]
     Active Substance: LEVOFLOXACIN
     Indication: URINARY TRACT INFECTION
     Dates: start: 20181028, end: 20181029
  3. HCTZ [Concomitant]
     Active Substance: HYDROCHLOROTHIAZIDE

REACTIONS (5)
  - Periarthritis [None]
  - Musculoskeletal pain [None]
  - Tendonitis [None]
  - Neck pain [None]
  - Pain in extremity [None]

NARRATIVE: CASE EVENT DATE: 20181028
